FAERS Safety Report 4307809-3 (Version None)
Quarter: 2004Q1

REPORT INFORMATION
  Report Type: 
  Country: None (occurrence: None)
  Receive Date: 20040225
  Receipt Date: 20030318
  Transmission Date: 20041129
  Serious: Yes (Other)
  Sender: FDA-Public Use
  Company Number: WAES 0303USA01766

PATIENT
  Age: 79 Year
  Sex: Male

DRUGS (4)
  1. ZOCOR [Suspect]
     Indication: BLOOD CHOLESTEROL INCREASED
     Dosage: 20 MG/DAILY/PO
     Route: 048
     Dates: start: 19900101
  2. DIOVAN [Concomitant]
  3. PREVACID [Concomitant]
  4. TENORMIN [Concomitant]

REACTIONS (5)
  - CATARACT [None]
  - DIPLOPIA [None]
  - GENERAL SYMPTOM [None]
  - SKIN DISORDER [None]
  - VISION BLURRED [None]
